FAERS Safety Report 8083243-8 (Version None)
Quarter: 2012Q1

REPORT INFORMATION
  Report Type: 
  Country: None (occurrence: None)
  Receive Date: 20120127
  Receipt Date: 20110303
  Transmission Date: 20120608
  Serious: No
  Sender: FDA-Public Use
  Company Number: US-ABBOTT-11P-163-0709297-00

PATIENT
  Sex: Female
  Weight: 53.572 kg

DRUGS (3)
  1. HUMIRA [Suspect]
     Indication: CROHN'S DISEASE
     Dates: start: 20090101, end: 20110101
  2. ASECOL [Concomitant]
     Indication: CROHN'S DISEASE
     Dates: end: 20100801
  3. HUMIRA [Suspect]
     Dates: start: 20110218

REACTIONS (2)
  - DIARRHOEA [None]
  - NAUSEA [None]
